FAERS Safety Report 4467827-1 (Version None)
Quarter: 2004Q4

REPORT INFORMATION
  Report Type: 
  Country: None (occurrence: None)
  Receive Date: 20041007
  Receipt Date: 20040928
  Transmission Date: 20050328
  Serious: Yes (Other)
  Sender: FDA-Public Use
  Company Number: US-JNJFOC-20040601635

PATIENT
  Sex: Male
  Weight: 100.7 kg

DRUGS (1)
  1. DURAGESIC [Suspect]
     Route: 062
     Dates: start: 20020101, end: 20030201

REACTIONS (6)
  - CONSTIPATION [None]
  - CRYING [None]
  - DEPRESSION [None]
  - INSOMNIA [None]
  - SUICIDAL IDEATION [None]
  - TREMOR [None]
